FAERS Safety Report 9630520 (Version 2)
Quarter: 2013Q4

REPORT INFORMATION
  Report Type: Spontaneous
  Country: IT (occurrence: IT)
  Receive Date: 20131018
  Receipt Date: 20131112
  Transmission Date: 20140711
  Serious: Yes (Other)
  Sender: FDA-Public Use
  Company Number: IT-RANBAXY-2013RR-74043

PATIENT
  Age: 63 Year
  Sex: Male

DRUGS (2)
  1. AMOXICILLIN [Suspect]
     Indication: OROPHARYNGEAL PAIN
     Dosage: 1 G, COMPLETE
     Route: 048
     Dates: start: 20130831, end: 20130831
  2. PARACETAMOL [Suspect]
     Indication: HYPERPYREXIA
     Dosage: 1 DOSAGE UNIT, COMPLETE
     Route: 048
     Dates: start: 20130831, end: 20130831

REACTIONS (5)
  - Face oedema [Recovering/Resolving]
  - Hypersensitivity [Recovering/Resolving]
  - Lip oedema [Recovering/Resolving]
  - Pruritus [Recovering/Resolving]
  - Urticaria [Recovering/Resolving]
